FAERS Safety Report 18331087 (Version 1)
Quarter: 2020Q3

REPORT INFORMATION
  Report Type: Spontaneous
  Country: US (occurrence: US)
  Receive Date: 20200930
  Receipt Date: 20200930
  Transmission Date: 20201103
  Serious: No
  Sender: FDA-Public Use
  Company Number: US-VERTEX PHARMACEUTICALS-2020-009242

PATIENT
  Sex: Male

DRUGS (1)
  1. TRIKAFTA [Suspect]
     Active Substance: ELEXACAFTOR\IVACAFTOR\TEZACAFTOR
     Indication: CYSTIC FIBROSIS
     Dosage: 100MG ELEXACAFTOR/ 50MG TEZACAFTOR/ 75MG IVACAFTOR; 150MG IVACAFTOR,  BID
     Route: 048
     Dates: start: 20191213

REACTIONS (1)
  - Pulmonary function test abnormal [Unknown]
